FAERS Safety Report 11663784 (Version 2)
Quarter: 2015Q4

REPORT INFORMATION
  Report Type: Spontaneous
  Country: US (occurrence: US)
  Receive Date: 20151027
  Receipt Date: 20151029
  Transmission Date: 20160304
  Serious: Yes (Other)
  Sender: FDA-Public Use
  Company Number: PHEH2014US023512

PATIENT
  Age: 15 Year
  Sex: Male
  Weight: 40 kg

DRUGS (2)
  1. EXJADE [Suspect]
     Active Substance: DEFERASIROX
     Indication: IRON OVERLOAD
  2. EXJADE [Suspect]
     Active Substance: DEFERASIROX
     Indication: SICKLE CELL ANAEMIA
     Dosage: 1000 MG/KG, QD
     Route: 048
     Dates: start: 20131121

REACTIONS (1)
  - Diarrhoea [Not Recovered/Not Resolved]

NARRATIVE: CASE EVENT DATE: 20131121
